FAERS Safety Report 16629665 (Version 1)
Quarter: 2019Q3

REPORT INFORMATION
  Report Type: Spontaneous
  Country: FR (occurrence: FR)
  Receive Date: 20190725
  Receipt Date: 20190725
  Transmission Date: 20191004
  Serious: No
  Sender: FDA-Public Use
  Company Number: FR-BEH-2019104610

PATIENT
  Age: 73 Year
  Sex: Female

DRUGS (4)
  1. SET, I.V. FLUID TRANSFER/ NEEDLE, HYPODERMIC, SINGLE LUMEN(RESPREEZA) [Suspect]
     Active Substance: .ALPHA.1-PROTEINASE INHIBITOR HUMAN
     Dosage: UNK
     Route: 065
     Dates: start: 201906
  2. VOGALENE [Concomitant]
     Active Substance: METOPIMAZINE
  3. SET, I.V. FLUID TRANSFER/ NEEDLE, HYPODERMIC, SINGLE LUMEN(RESPREEZA) [Suspect]
     Active Substance: .ALPHA.1-PROTEINASE INHIBITOR HUMAN
     Dosage: UNK
     Route: 065
     Dates: end: 201904
  4. OXYGEN. [Concomitant]
     Active Substance: OXYGEN

REACTIONS (5)
  - Nausea [Unknown]
  - Blood creatinine decreased [Unknown]
  - Ill-defined disorder [Unknown]
  - Decreased appetite [Unknown]
  - Protein total decreased [Unknown]
